FAERS Safety Report 6684341-3 (Version None)
Quarter: 2010Q2

REPORT INFORMATION
  Report Type: 
  Country: None (occurrence: None)
  Receive Date: 20100416
  Receipt Date: 20100406
  Transmission Date: 20101027
  Serious: Yes (Other)
  Sender: FDA-Public Use
  Company Number: PHEH2009US16236

PATIENT
  Sex: Male

DRUGS (16)
  1. EXJADE [Suspect]
     Indication: BLOOD DISORDER
     Dosage: 1500 MG, QD
     Route: 048
     Dates: start: 20080301
  2. EXJADE [Suspect]
     Indication: IRON OVERLOAD
  3. VITAMIN B COMPLEX CAP [Concomitant]
  4. CALCIUM WITH VITAMIN D [Concomitant]
  5. COPPER GLUCONATE [Concomitant]
     Dosage: 10 MG DAILY
  6. FISH OIL [Concomitant]
     Dosage: DAILY
  7. IBUPROFEN [Concomitant]
     Dosage: 200 MG, PRN
  8. LORATADINE [Concomitant]
     Dosage: PRN
  9. MUCINEX [Concomitant]
  10. MULTI-VITAMINS [Concomitant]
  11. PROCHLORPERAZINE [Concomitant]
     Dosage: PRN
  12. REQUIP [Concomitant]
     Dosage: 0.25 MG DAILY
  13. SULINDAC [Concomitant]
     Dosage: 100 MG, BID
  14. TESTOSTERONE [Concomitant]
  15. VITAMIN D [Concomitant]
     Dosage: 3000 U DAILY
  16. AZACITIDINE [Concomitant]
     Route: 048

REACTIONS (20)
  - AMNESIA [None]
  - ANAEMIA [None]
  - APHASIA [None]
  - BONE MARROW FAILURE [None]
  - COLOUR BLINDNESS ACQUIRED [None]
  - CONSTIPATION [None]
  - COUGH [None]
  - DIZZINESS POSTURAL [None]
  - FATIGUE [None]
  - FIBROSIS [None]
  - HAEMOGLOBIN DECREASED [None]
  - HAEMOSIDEROSIS [None]
  - HEADACHE [None]
  - HEARING IMPAIRED [None]
  - HEPATIC STEATOSIS [None]
  - HYPOAESTHESIA [None]
  - NAUSEA [None]
  - RESTLESS LEGS SYNDROME [None]
  - SLEEP APNOEA SYNDROME [None]
  - VISUAL IMPAIRMENT [None]
